FAERS Safety Report 22632746 (Version 1)
Quarter: 2023Q2

REPORT INFORMATION
  Report Type: Report from Study
  Country: EG (occurrence: EG)
  Receive Date: 20230623
  Receipt Date: 20230623
  Transmission Date: 20230722
  Serious: Yes (Other)
  Sender: FDA-Public Use
  Company Number: EG-002147023-NVSC2023EG141204

PATIENT
  Age: 43 Year
  Sex: Male

DRUGS (7)
  1. ENTRESTO [Suspect]
     Active Substance: SACUBITRIL\VALSARTAN
     Indication: Cardiac failure
     Dosage: 1 DOSAGE FORM, QD (50 MG)
     Route: 048
     Dates: start: 20200501, end: 20221126
  2. ENTRESTO [Suspect]
     Active Substance: SACUBITRIL\VALSARTAN
     Dosage: 1 DOSAGE FORM, QD (100 MG)
     Route: 048
     Dates: start: 20221126, end: 202304
  3. CARFALONE [Concomitant]
     Indication: Cardiac failure
     Dosage: 0.5 DOSAGE FORM, QD (AT NIGHT)
     Route: 048
     Dates: start: 2020
  4. METOPROLOL SUCCINATE [Concomitant]
     Active Substance: METOPROLOL SUCCINATE
     Indication: Cardiac disorder
     Route: 065
  5. CRESTOLIP [Concomitant]
     Indication: Blood cholesterol increased
     Route: 048
  6. TORSEMIDE [Concomitant]
     Active Substance: TORSEMIDE
     Indication: Diuretic therapy
     Dosage: 0.5 DOSAGE FORM, QD (STRENGTH: 100MG,)
     Route: 065
  7. TORSEMIDE [Concomitant]
     Active Substance: TORSEMIDE
     Dosage: HALF TABLET ONCE DAILY OR ONE TABLET ONCE DAILY AS NEEDED (STRENGTH: 20 MG)
     Route: 048

REACTIONS (6)
  - Lethargy [Recovered/Resolved]
  - Fatigue [Recovered/Resolved]
  - Asthenia [Recovered/Resolved]
  - Dyspnoea exertional [Recovered/Resolved]
  - Hypotension [Recovered/Resolved]
  - Off label use [Recovered/Resolved]

NARRATIVE: CASE EVENT DATE: 20200501
